FAERS Safety Report 6841349-2 (Version None)
Quarter: 2010Q3

REPORT INFORMATION
  Report Type: 
  Country: None (occurrence: None)
  Receive Date: 20100714
  Receipt Date: 20070703
  Transmission Date: 20110219
  Serious: No
  Sender: FDA-Public Use
  Company Number: US-PFIZER INC-2007055204

PATIENT
  Sex: Male
  Weight: 74.8 kg

DRUGS (6)
  1. CHANTIX [Suspect]
     Indication: SMOKING CESSATION THERAPY
     Dates: start: 20070615
  2. ATRIPLA [Concomitant]
  3. ALL OTHER THERAPEUTIC PRODUCTS [Concomitant]
  4. VALTREX [Concomitant]
  5. ZIAGEN [Concomitant]
  6. XANAX [Concomitant]

REACTIONS (3)
  - DISORIENTATION [None]
  - FEELING ABNORMAL [None]
  - SOMNAMBULISM [None]
